FAERS Safety Report 12756021 (Version 4)
Quarter: 2016Q4

REPORT INFORMATION
  Report Type: Report from Study
  Country: CA (occurrence: CA)
  Receive Date: 20160916
  Receipt Date: 20161114
  Transmission Date: 20170207
  Serious: Yes (Death, Life-Threatening, Hospitalization, Other)
  Sender: FDA-Public Use
  Company Number: CA-JNJFOC-20160713212

PATIENT
  Age: 75 Year
  Sex: Male

DRUGS (5)
  1. TECTA [Concomitant]
     Active Substance: PANTOPRAZOLE MAGNESIUM
     Indication: GASTROOESOPHAGEAL REFLUX DISEASE
     Route: 065
  2. IMBRUVICA [Suspect]
     Active Substance: IBRUTINIB
     Indication: WALDENSTROM^S MACROGLOBULINAEMIA
     Route: 048
     Dates: start: 20160629, end: 20160907
  3. ZOCOR [Concomitant]
     Active Substance: SIMVASTATIN
     Indication: BLOOD CHOLESTEROL
     Route: 065
  4. NITROGLYCERIN. [Suspect]
     Active Substance: NITROGLYCERIN
     Indication: ANGINA PECTORIS
     Route: 062
     Dates: start: 20160709
  5. NITROGLYCERIN. [Concomitant]
     Active Substance: NITROGLYCERIN
     Indication: ANGINA PECTORIS
     Dosage: 1-3 TIMES/DAY PRN
     Dates: start: 201607

REACTIONS (16)
  - Platelet count decreased [Not Recovered/Not Resolved]
  - Muscular weakness [Recovering/Resolving]
  - White blood cell count decreased [Not Recovered/Not Resolved]
  - Rib fracture [Recovered/Resolved]
  - Aphasia [Recovering/Resolving]
  - Purpura [Not Recovered/Not Resolved]
  - Lymphocyte count decreased [Not Recovered/Not Resolved]
  - Myocardial infarction [Fatal]
  - Cerebral haemorrhage [Recovering/Resolving]
  - Fatigue [Not Recovered/Not Resolved]
  - Angina unstable [Recovering/Resolving]
  - Meningitis [Recovered/Resolved]
  - Pneumonia [Recovered/Resolved]
  - Application site purpura [Not Recovered/Not Resolved]
  - Fall [Recovered/Resolved]
  - Increased tendency to bruise [Not Recovered/Not Resolved]

NARRATIVE: CASE EVENT DATE: 2016
